FAERS Safety Report 22324854 (Version 1)
Quarter: 2023Q2

REPORT INFORMATION
  Report Type: Spontaneous
  Country: US (occurrence: None)
  Receive Date: 20230513
  Receipt Date: 20230513
  Transmission Date: 20230721
  Serious: Yes (Other)
  Sender: FDA-Public Use
  Company Number: None

PATIENT
  Age: 43 Year
  Sex: Female
  Weight: 78.3 kg

DRUGS (1)
  1. MIRENA [Suspect]
     Active Substance: LEVONORGESTREL
     Indication: Heavy menstrual bleeding
     Dates: start: 20230504, end: 20230509

REACTIONS (3)
  - Herpes zoster [None]
  - Device dislocation [None]
  - Abdominal infection [None]

NARRATIVE: CASE EVENT DATE: 20230509
